FAERS Safety Report 9481390 (Version 2)
Quarter: 2013Q3

REPORT INFORMATION
  Report Type: Spontaneous
  Country: US (occurrence: US)
  Receive Date: 20130828
  Receipt Date: 20130828
  Transmission Date: 20140515
  Serious: Yes (Hospitalization)
  Sender: FDA-Public Use
  Company Number: US-AMGEN-KDL154565

PATIENT
  Age: 40 Year
  Sex: Female

DRUGS (2)
  1. ENBREL [Suspect]
     Indication: RHEUMATOID ARTHRITIS
     Dosage: 50 MG, QWK
     Route: 058
     Dates: start: 19991201
  2. ENBREL [Suspect]
     Indication: SYSTEMIC LUPUS ERYTHEMATOSUS

REACTIONS (6)
  - Pneumonia [Recovered/Resolved]
  - Menorrhagia [Unknown]
  - Pleural effusion [Recovered/Resolved]
  - Anaemia [Unknown]
  - Abdominal pain [Recovered/Resolved]
  - Vaginal haemorrhage [Recovered/Resolved]
